FAERS Safety Report 4785583-4 (Version None)
Quarter: 2005Q4

REPORT INFORMATION
  Report Type: 
  Country: None (occurrence: None)
  Receive Date: 20051003
  Receipt Date: 20050920
  Transmission Date: 20060501
  Serious: Yes (Hospitalization)
  Sender: FDA-Public Use
  Company Number: FR-GLAXOSMITHKLINE-B0394622A

PATIENT
  Age: 77 Year
  Sex: Female
  Weight: 54 kg

DRUGS (17)
  1. DEROXAT [Suspect]
     Indication: DRUG USE FOR UNKNOWN INDICATION
     Dosage: 20MG PER DAY
     Route: 048
     Dates: start: 20050711, end: 20050721
  2. CORDARONE [Suspect]
     Dosage: 200MG PER DAY
     Route: 048
     Dates: end: 20050706
  3. DILTIAZEM HCL [Suspect]
     Route: 048
     Dates: start: 20050625, end: 20050706
  4. RULID [Suspect]
     Dosage: 150MG TWICE PER DAY
     Route: 048
     Dates: start: 20050721, end: 20050803
  5. NOROXIN [Suspect]
     Dosage: 400MG TWICE PER DAY
     Route: 048
     Dates: start: 20050715, end: 20050721
  6. TENORMIN [Concomitant]
     Dates: start: 20000101
  7. PREVISCAN [Concomitant]
     Dates: start: 20000101
  8. LASILIX [Concomitant]
  9. FORADIL [Concomitant]
     Dates: end: 20050527
  10. MIXTARD HUMAN 70/30 [Concomitant]
  11. OXEOL [Concomitant]
     Dosage: 20MG PER DAY
     Dates: end: 20050527
  12. BECLOMETHASONE DIPROPIONATE [Concomitant]
     Dates: end: 20050527
  13. BRONCHODUAL [Concomitant]
     Dates: end: 20050527
  14. NEBIVOLOL HCL [Concomitant]
     Dates: start: 20050531, end: 20050620
  15. SOLU-MEDROL [Concomitant]
     Dates: start: 20050621, end: 20050628
  16. TRIATEC [Concomitant]
     Dates: start: 20050624
  17. DILTIAZEM HYDROCHLORIDE [Concomitant]
     Dates: start: 20050625, end: 20050629

REACTIONS (9)
  - C-REACTIVE PROTEIN INCREASED [None]
  - DYSPNOEA EXACERBATED [None]
  - EOSINOPHILIA [None]
  - GENERAL PHYSICAL HEALTH DETERIORATION [None]
  - HYPOXIA [None]
  - INTERSTITIAL LUNG DISEASE [None]
  - PLEURAL EFFUSION [None]
  - PYREXIA [None]
  - URINARY TRACT INFECTION [None]
